FAERS Safety Report 9286159 (Version 2)
Quarter: 2013Q2

REPORT INFORMATION
  Report Type: Spontaneous
  Country: US (occurrence: US)
  Receive Date: 20130513
  Receipt Date: 20130513
  Transmission Date: 20140414
  Serious: Yes (Other)
  Sender: FDA-Public Use
  Company Number: US-BAYER-2013-056965

PATIENT
  Age: 80 Year
  Sex: Female
  Weight: 72.56 kg

DRUGS (6)
  1. XARELTO [Suspect]
     Indication: CEREBROVASCULAR ACCIDENT PROPHYLAXIS
     Dosage: 20 MG, QD
     Route: 048
     Dates: start: 201210
  2. XARELTO [Interacting]
     Indication: ATRIAL FIBRILLATION
  3. ACETYLSALICYLIC ACID({=100 MG) [Interacting]
     Dosage: 81 MG, UNK
     Route: 048
  4. METOPROLOL SUCCINATE [Concomitant]
     Indication: CARDIAC DISORDER
     Dosage: 100 MG, QD
     Route: 048
  5. METOPROLOL SUCCINATE [Concomitant]
     Indication: CARDIAC DISORDER
     Dosage: 50 MG, UNK
     Route: 048
  6. LISINOPRIL [Concomitant]
     Indication: HYPERTENSION
     Dosage: 5 MG, UNK
     Route: 048

REACTIONS (3)
  - Melaena [Recovered/Resolved]
  - Bowel movement irregularity [Recovered/Resolved]
  - Product quality issue [None]
